FAERS Safety Report 12006368 (Version 4)
Quarter: 2017Q2

REPORT INFORMATION
  Report Type: Spontaneous
  Country: US (occurrence: US)
  Receive Date: 20160204
  Receipt Date: 20170519
  Transmission Date: 20170829
  Serious: Yes (Hospitalization, Other)
  Sender: FDA-Public Use
  Company Number: US-BRISTOL-MYERS SQUIBB COMPANY-BMS-2015-093777

PATIENT
  Age: 69 Year
  Sex: Male

DRUGS (2)
  1. ABILIFY [Suspect]
     Active Substance: ARIPIPRAZOLE
     Indication: AFFECTIVE DISORDER
     Dosage: 2 MG, UNK
     Route: 065
     Dates: start: 20120924, end: 20150205
  2. ABILIFY [Suspect]
     Active Substance: ARIPIPRAZOLE
     Indication: MAJOR DEPRESSION
     Dosage: 1 MG, UNK
     Route: 065
     Dates: start: 20120924, end: 20150205

REACTIONS (9)
  - Suicidal ideation [Unknown]
  - Emotional distress [Unknown]
  - Suicide attempt [Unknown]
  - Impulse-control disorder [Unknown]
  - Obsessive-compulsive disorder [Unknown]
  - Injury [Unknown]
  - Mental disorder [Unknown]
  - Gambling disorder [Unknown]
  - Impulsive behaviour [Unknown]

NARRATIVE: CASE EVENT DATE: 20140613
